FAERS Safety Report 11319169 (Version 2)
Quarter: 2015Q3

REPORT INFORMATION
  Report Type: Report from Study
  Country: US (occurrence: US)
  Receive Date: 20150729
  Receipt Date: 20150731
  Transmission Date: 20151125
  Serious: No
  Sender: FDA-Public Use
  Company Number: US-AMGEN-USASL2015074945

PATIENT
  Age: 39 Year
  Sex: Female

DRUGS (1)
  1. ENBREL [Suspect]
     Active Substance: ETANERCEPT
     Indication: PRODUCT USED FOR UNKNOWN INDICATION
     Dosage: 50 MG EVERY 72 HOURS
     Route: 065
     Dates: start: 2015

REACTIONS (2)
  - Injection site pain [Unknown]
  - No therapeutic response [Unknown]

NARRATIVE: CASE EVENT DATE: 2015
